FAERS Safety Report 7688957-7 (Version None)
Quarter: 2011Q3

REPORT INFORMATION
  Report Type: 
  Country: None (occurrence: None)
  Receive Date: 20110817
  Receipt Date: 20110809
  Transmission Date: 20111222
  Serious: Yes (Hospitalization)
  Sender: FDA-Public Use
  Company Number: PHHY2010AU12377

PATIENT
  Sex: Female

DRUGS (5)
  1. CLOZAPINE [Suspect]
     Dosage: 600 MG
     Route: 048
     Dates: start: 20071112
  2. ATORVASTATIN [Concomitant]
     Dosage: 10 MG, MORNING
     Route: 048
  3. METFORMIN HCL [Concomitant]
     Dosage: 1000 MG, BID
     Route: 048
  4. NOVOLOG [Suspect]
     Dosage: 140 UNITS MORNING AND 80 UNITS NIGHT
     Route: 058
  5. VALPROATE SODIUM [Concomitant]
     Dosage: 1000 MG, BID
     Route: 048

REACTIONS (3)
  - MALAISE [None]
  - DIABETES MELLITUS [None]
  - MENTAL DISORDER [None]
